FAERS Safety Report 4988631-1 (Version None)
Quarter: 2006Q2

REPORT INFORMATION
  Report Type: 
  Country: None (occurrence: None)
  Receive Date: 20060502
  Receipt Date: 20051103
  Transmission Date: 20061013
  Serious: Yes (Hospitalization, Disabling)
  Sender: FDA-Public Use
  Company Number: US-ROCHE-423642

PATIENT
  Age: 47 Year
  Sex: Male
  Weight: 81.6 kg

DRUGS (4)
  1. ACCUTANE [Suspect]
     Indication: ACNE
     Route: 048
     Dates: start: 19970615, end: 19980615
  2. COZAAR [Concomitant]
     Indication: HYPERTENSION
  3. CLARITIN-D [Concomitant]
  4. FIORICET [Concomitant]

REACTIONS (33)
  - ANHEDONIA [None]
  - ANXIETY [None]
  - ARTHRALGIA [None]
  - ASTHENIA [None]
  - COLITIS [None]
  - COLITIS ULCERATIVE [None]
  - COLONIC POLYP [None]
  - CROHN'S DISEASE [None]
  - DEPRESSED MOOD [None]
  - DISTURBANCE IN ATTENTION [None]
  - EMOTIONAL DISTRESS [None]
  - FAILURE TO THRIVE [None]
  - FEELINGS OF WORTHLESSNESS [None]
  - FLIGHT OF IDEAS [None]
  - GASTROINTESTINAL DISORDER [None]
  - HAEMOGLOBIN DECREASED [None]
  - HYPERTENSION [None]
  - INFLAMMATORY BOWEL DISEASE [None]
  - INSOMNIA [None]
  - INTESTINAL HAEMORRHAGE [None]
  - IRRITABILITY [None]
  - MICTURITION URGENCY [None]
  - NAUSEA [None]
  - OSTEOPOROSIS [None]
  - PALPITATIONS [None]
  - PHARYNGITIS [None]
  - PLATELET COUNT DECREASED [None]
  - RESTLESSNESS [None]
  - ROTATOR CUFF SYNDROME [None]
  - SCROTAL CYST [None]
  - SINUSITIS [None]
  - URINARY RETENTION [None]
  - WEIGHT DECREASED [None]
